FAERS Safety Report 18980846 (Version 2)
Quarter: 2021Q1

REPORT INFORMATION
  Report Type: Spontaneous
  Country: US (occurrence: US)
  Receive Date: 20210308
  Receipt Date: 20210330
  Transmission Date: 20210420
  Serious: Yes (Life-Threatening, Hospitalization)
  Sender: FDA-Public Use
  Company Number: US-TEVA-2021-US-1885262

PATIENT
  Age: 84 Year
  Sex: Female

DRUGS (3)
  1. LISINOPRIL. [Suspect]
     Active Substance: LISINOPRIL
     Indication: HYPERTENSION
     Route: 065
  2. ALTEPLASE. [Interacting]
     Active Substance: ALTEPLASE
     Indication: CEREBRAL INFARCTION
     Route: 040
  3. ALTEPLASE. [Interacting]
     Active Substance: ALTEPLASE
     Route: 041

REACTIONS (3)
  - Angioedema [Recovering/Resolving]
  - Swollen tongue [Recovering/Resolving]
  - Drug interaction [Recovering/Resolving]
